FAERS Safety Report 7661599-5 (Version None)
Quarter: 2011Q3

REPORT INFORMATION
  Report Type: 
  Country: None (occurrence: None)
  Receive Date: 20110805
  Receipt Date: 20101025
  Transmission Date: 20111222
  Serious: No
  Sender: FDA-Public Use
  Company Number: US-ABBOTT-10P-163-0680945-00

PATIENT
  Sex: Female
  Weight: 82.174 kg

DRUGS (9)
  1. HYDROCHLOROTHIAZIDE [Concomitant]
     Indication: PRODUCT USED FOR UNKNOWN INDICATION
     Route: 048
  2. LISINOPRIL [Concomitant]
     Indication: PRODUCT USED FOR UNKNOWN INDICATION
     Route: 048
  3. NIFEDICAL [Concomitant]
     Indication: PRODUCT USED FOR UNKNOWN INDICATION
     Route: 048
  4. CALCIUM 600 PLUS VITAMIN D [Concomitant]
     Indication: PRODUCT USED FOR UNKNOWN INDICATION
     Route: 048
  5. PROAIR HFA [Concomitant]
     Indication: PRODUCT USED FOR UNKNOWN INDICATION
     Route: 055
  6. ASPIRIN [Concomitant]
     Indication: PRODUCT USED FOR UNKNOWN INDICATION
  7. FLOVENT [Concomitant]
     Indication: PRODUCT USED FOR UNKNOWN INDICATION
     Route: 055
  8. NIASPAN [Suspect]
     Indication: DYSLIPIDAEMIA
     Dosage: 500 MG DAILY AT BEDTIME
     Route: 048
     Dates: start: 20101011, end: 20101025
  9. NABUMETONE [Concomitant]
     Indication: PRODUCT USED FOR UNKNOWN INDICATION
     Route: 048

REACTIONS (5)
  - ERYTHEMA [None]
  - PRURITUS [None]
  - FLUSHING [None]
  - FEELING HOT [None]
  - PARAESTHESIA [None]
